FAERS Safety Report 18577489 (Version 3)
Quarter: 2021Q1

REPORT INFORMATION
  Report Type: Other
  Country: CA (occurrence: CA)
  Receive Date: 20201203
  Receipt Date: 20210225
  Transmission Date: 20210419
  Serious: Yes (Other)
  Sender: FDA-Public Use
  Company Number: CA-CELLTRION INC.-2020CA032952

PATIENT

DRUGS (19)
  1. RITUXIMAB (UNKNOWN) [Suspect]
     Active Substance: RITUXIMAB
     Dosage: 500 MILLIGRAM
     Route: 042
  2. ATORVASTATIN [Concomitant]
     Active Substance: ATORVASTATIN
     Dosage: 81 MG
     Route: 065
  3. CORTISOL [Concomitant]
     Active Substance: HYDROCORTISONE
  4. INDAPAMIDE. [Concomitant]
     Active Substance: INDAPAMIDE
     Dosage: 25 MG
     Route: 065
  5. METHYLPREDNISOLONE SODIUM SUCCINATE. [Concomitant]
     Active Substance: METHYLPREDNISOLONE SODIUM SUCCINATE
     Indication: PREMEDICATION
     Dosage: 125 MG
     Route: 042
  6. RISEDRONATE [Concomitant]
     Active Substance: RISEDRONATE SODIUM
  7. ACETAMINOPHEN. [Concomitant]
     Active Substance: ACETAMINOPHEN
     Indication: PREMEDICATION
     Dosage: 1000 MILLIGRAM
     Route: 048
  8. ASPIRIN [ACETYLSALICYLIC ACID] [Concomitant]
     Active Substance: ASPIRIN
     Dosage: 81 MILLIGRAM
     Route: 065
  9. BENADRYL [Concomitant]
     Active Substance: DIPHENHYDRAMINE HYDROCHLORIDE
     Dosage: 50 MG
     Route: 048
  10. ATORVASTATIN [Concomitant]
     Active Substance: ATORVASTATIN
     Dosage: 20 MG
     Route: 065
  11. PANTOPRAZOLE [Concomitant]
     Active Substance: PANTOPRAZOLE
     Dosage: 40 MG
     Route: 065
  12. RITUXIMAB (UNKNOWN) [Suspect]
     Active Substance: RITUXIMAB
     Dosage: 1000 MILLIGRAM
     Route: 042
  13. CALCIUM [Concomitant]
     Active Substance: CALCIUM
  14. PERINDOPRIL [Concomitant]
     Active Substance: PERINDOPRIL
     Dosage: 8 MG
     Route: 065
  15. RITUXIMAB (UNKNOWN) [Suspect]
     Active Substance: RITUXIMAB
     Indication: IMMUNOGLOBULIN G4 RELATED DISEASE
     Dosage: 1000 MILLIGRAM
     Route: 042
  16. COVERSYL PLUS HD [Concomitant]
     Active Substance: INDAPAMIDE\PERINDOPRIL ERBUMINE
  17. TYLENOL [Concomitant]
     Active Substance: ACETAMINOPHEN
     Indication: PREMEDICATION
     Dosage: 1000 MG
     Route: 065
  18. DIPHENHYDRAMINE HYDROCHLORIDE. [Concomitant]
     Active Substance: DIPHENHYDRAMINE HYDROCHLORIDE
     Indication: PREMEDICATION
     Dosage: 50 MILLIGRAM
     Route: 048
  19. METHYLPREDNISOLONE. [Concomitant]
     Active Substance: METHYLPREDNISOLONE
     Indication: PREMEDICATION
     Dosage: 125 MILLIGRAM
     Route: 017

REACTIONS (27)
  - Mean cell volume increased [Unknown]
  - Blood immunoglobulin G decreased [Unknown]
  - Blood pressure systolic abnormal [Unknown]
  - Monocyte count increased [Unknown]
  - C-reactive protein increased [Unknown]
  - Mean platelet volume increased [Unknown]
  - Heart rate decreased [Unknown]
  - Haemoglobin decreased [Unknown]
  - Cardiac disorder [Unknown]
  - Lymphocyte count decreased [Unknown]
  - Haematocrit decreased [Unknown]
  - Neutrophil count increased [Unknown]
  - Gastrointestinal disorder [Unknown]
  - Blood pressure systolic increased [Unknown]
  - Splenic granuloma [Unknown]
  - Blood phosphorus decreased [Unknown]
  - Mean cell haemoglobin increased [Unknown]
  - Red blood cell sedimentation rate increased [Unknown]
  - Red cell distribution width decreased [Unknown]
  - Red blood cell count decreased [Unknown]
  - Off label use [Unknown]
  - White blood cell count increased [Unknown]
  - Pulmonary granuloma [Unknown]
  - Raynaud^s phenomenon [Unknown]
  - Blood immunoglobulin M decreased [Unknown]
  - Hypertension [Unknown]
  - Platelet count decreased [Unknown]
